FAERS Safety Report 4505502-5 (Version None)
Quarter: 2004Q4

REPORT INFORMATION
  Report Type: 
  Country: None (occurrence: None)
  Receive Date: 20041119
  Receipt Date: 20041007
  Transmission Date: 20050328
  Serious: Yes (Life-Threatening, Hospitalization)
  Sender: FDA-Public Use
  Company Number: US-ROCHE-382890

PATIENT
  Age: 43 Year
  Sex: Male
  Weight: 116 kg

DRUGS (4)
  1. PEGASYS [Suspect]
     Route: 058
     Dates: start: 20040220
  2. PEGASYS [Suspect]
     Dosage: WAS ON DOSE REDUCTION.
     Route: 058
     Dates: end: 20040728
  3. RIBAVIRIN [Suspect]
     Route: 065
     Dates: start: 20040220
  4. RIBAVIRIN [Suspect]
     Dosage: DOSE WAS REDUCED DUE TO SECONDARY THROMBOCYTOPENIA AND ANAEMIA (UNKNOWN DATES) BEFORE BEING DISCONT+
     Route: 065
     Dates: end: 20040723

REACTIONS (7)
  - ANAEMIA [None]
  - CHEST PAIN [None]
  - FATIGUE [None]
  - HEADACHE [None]
  - PLATELET COUNT DECREASED [None]
  - THROMBOCYTOPENIA [None]
  - THROMBOTIC THROMBOCYTOPENIC PURPURA [None]
